FAERS Safety Report 14649379 (Version 1)
Quarter: 2018Q1

REPORT INFORMATION
  Report Type: Spontaneous
  Country: PL (occurrence: PL)
  Receive Date: 20180316
  Receipt Date: 20180316
  Transmission Date: 20180509
  Serious: Yes (Other)
  Sender: FDA-Public Use
  Company Number: PL-TEVA-2018-PL-869348

PATIENT
  Age: 2 Year
  Sex: Male
  Weight: 16.16 kg

DRUGS (5)
  1. VANCOMYCIN [Suspect]
     Active Substance: VANCOMYCIN
     Indication: MENINGITIS
     Route: 042
  2. CEFTRIAKSON [Concomitant]
     Active Substance: CEFTRIAXONE SODIUM
     Indication: SEPSIS
     Route: 042
  3. CEFTRIAKSON [Concomitant]
     Active Substance: CEFTRIAXONE SODIUM
     Indication: ACUTE SINUSITIS
  4. KIRKLAND SIGNATURE ALLER TEC ALLERGY [Concomitant]
     Active Substance: CETIRIZINE HYDROCHLORIDE
     Indication: ERYTHEMA
     Dosage: DOSE: 2X 10 DROPS
     Route: 048
  5. DEXAVEN [Concomitant]
     Active Substance: DEXAMETHASONE
     Indication: ERYTHEMA
     Route: 042

REACTIONS (2)
  - Erythema [Unknown]
  - Pruritus [Unknown]
